FAERS Safety Report 25011425 (Version 1)
Quarter: 2025Q1

REPORT INFORMATION
  Report Type: Report from Study
  Country: US (occurrence: US)
  Receive Date: 20250226
  Receipt Date: 20250226
  Transmission Date: 20250409
  Serious: Yes (Hospitalization)
  Sender: SERVIER
  Company Number: US-SERVIER-S25002118

PATIENT

DRUGS (1)
  1. TIBSOVO [Suspect]
     Active Substance: IVOSIDENIB
     Indication: Brain neoplasm malignant
     Dosage: 500 MG, QD
     Route: 048
     Dates: start: 20231101

REACTIONS (3)
  - Vertigo [Unknown]
  - Nausea [Unknown]
  - Pulmonary mass [Unknown]

NARRATIVE: CASE EVENT DATE: 20250101
